FAERS Safety Report 4382402-5 (Version None)
Quarter: 2004Q2

REPORT INFORMATION
  Report Type: 
  Country: None (occurrence: None)
  Receive Date: 20040621
  Receipt Date: 20040611
  Transmission Date: 20050107
  Serious: Yes (Hospitalization)
  Sender: FDA-Public Use
  Company Number: A-CH2004-06593

PATIENT
  Age: 75 Year
  Sex: Male
  Weight: 66 kg

DRUGS (8)
  1. TRACLEER [Suspect]
     Indication: PULMONARY HYPERTENSION
     Dosage: SEE IMAGE
     Route: 048
     Dates: start: 20030304, end: 20030402
  2. AUGMENTIN [Suspect]
  3. DIGOXIN [Concomitant]
  4. OMEPRAZOLE [Concomitant]
  5. SPIRONOLACTONE [Concomitant]
  6. BUMETANIDE [Concomitant]
  7. WARFARIN SODIUM [Concomitant]
  8. ILOPROST (ILOPROST) [Concomitant]

REACTIONS (6)
  - ANEURYSM [None]
  - ATRIAL SEPTAL DEFECT ACQUIRED [None]
  - BLOOD ALKALINE PHOSPHATASE INCREASED [None]
  - BLOOD BILIRUBIN INCREASED [None]
  - CATHETERISATION CARDIAC [None]
  - JAUNDICE CHOLESTATIC [None]
